FAERS Safety Report 21853748 (Version 1)
Quarter: 2023Q1

REPORT INFORMATION
  Report Type: Report from Study
  Country: DE (occurrence: DE)
  Receive Date: 20230112
  Receipt Date: 20230112
  Transmission Date: 20230418
  Serious: Yes (Hospitalization)
  Sender: FDA-Public Use
  Company Number: DE-ABBVIE-4267495

PATIENT
  Sex: Female

DRUGS (3)
  1. RINVOQ [Suspect]
     Active Substance: UPADACITINIB
     Indication: Rheumatoid arthritis
     Route: 048
     Dates: start: 20200505
  2. CALCIUM CARBONATE\CHOLECALCIFEROL [Concomitant]
     Active Substance: CALCIUM CARBONATE\CHOLECALCIFEROL
     Indication: Osteoporosis
     Route: 048
     Dates: start: 2015
  3. Metex [Concomitant]
     Indication: Rheumatic disorder
     Route: 058
     Dates: start: 2019

REACTIONS (3)
  - Coma [Recovered/Resolved]
  - Renal failure [Recovered/Resolved]
  - Pneumonia [Recovered/Resolved]
